FAERS Safety Report 8425203-0 (Version None)
Quarter: 2012Q2

REPORT INFORMATION
  Report Type: 
  Country: None (occurrence: None)
  Receive Date: 20120529
  Receipt Date: 20120516
  Transmission Date: 20120825
  Serious: Yes (Hospitalization)
  Sender: FDA-Public Use
  Company Number: 2012031440

PATIENT
  Age: 54 Year
  Sex: Female
  Weight: 72.5755 kg

DRUGS (7)
  1. BENADRYL [Concomitant]
  2. ZEMAIRA [Suspect]
     Indication: ALPHA-1 ANTI-TRYPSIN DEFICIENCY
     Dosage: (60 MG/KG 1X/WEEK, 1045 MG/VIAL; 0.08 ML; PER KG PER KIN (5.8 ML PER MIN) INTRAVENOUS
     Route: 042
     Dates: start: 20120222, end: 20120222
  3. TRAZODONE HCL [Concomitant]
  4. MULTIVITAMIN (MULTIVITAMIN /00831701/) [Concomitant]
  5. LAMICTAL [Concomitant]
  6. SODIUM CHLORIDE 0.9% [Concomitant]
  7. FLUOXETINE [Concomitant]

REACTIONS (2)
  - ADVERSE EVENT [None]
  - HOSPITALISATION [None]
